FAERS Safety Report 6472162-6 (Version None)
Quarter: 2009Q4

REPORT INFORMATION
  Report Type: 
  Country: None (occurrence: None)
  Receive Date: 20091119
  Receipt Date: 20090721
  Transmission Date: 20100525
  Serious: No
  Sender: FDA-Public Use
  Company Number: WAES 0907USA03344

PATIENT
  Age: 85 Year
  Sex: Male

DRUGS (3)
  1. JANUVIA [Suspect]
     Indication: TYPE 2 DIABETES MELLITUS
     Dosage: 100 MG/DAILY/PO  : 50 MG/DAILY/PO
     Route: 048
     Dates: start: 20080101
  2. GLIMEPIRIDE [Concomitant]
  3. METFORMIN HCL [Concomitant]

REACTIONS (2)
  - BONE PAIN [None]
  - MYALGIA [None]
